FAERS Safety Report 4824828-9 (Version None)
Quarter: 2005Q4

REPORT INFORMATION
  Report Type: 
  Country: None (occurrence: None)
  Receive Date: 20051108
  Receipt Date: 20051028
  Transmission Date: 20060501
  Serious: Yes (Other)
  Sender: FDA-Public Use
  Company Number: 12759

PATIENT
  Age: 18 Year
  Sex: Male

DRUGS (13)
  1. METHOTREXATE [Suspect]
     Indication: ACUTE LYMPHOCYTIC LEUKAEMIA
  2. METHOTREXATE [Suspect]
     Indication: ACUTE LYMPHOCYTIC LEUKAEMIA
  3. CYTARABINE [Suspect]
     Indication: ACUTE LYMPHOCYTIC LEUKAEMIA
  4. CYTARABINE [Suspect]
     Indication: ACUTE LYMPHOCYTIC LEUKAEMIA
  5. CYCLOPHOSPHAMIDE [Concomitant]
  6. DEXAMETHASONE [Concomitant]
  7. ELSPAR [Concomitant]
  8. VINCRISTINE [Concomitant]
  9. DAUNORUBICIN [Concomitant]
  10. PREDNISOLONE [Concomitant]
  11. MERCAPTOPURINE [Concomitant]
  12. VINDESINE [Concomitant]
  13. ETOPOSIDE [Concomitant]

REACTIONS (11)
  - APLASIA [None]
  - AREFLEXIA [None]
  - DRUG TOXICITY [None]
  - FACIAL PARESIS [None]
  - MYELOPATHY [None]
  - NUCLEAR MAGNETIC RESONANCE IMAGING BRAIN ABNORMAL [None]
  - OEDEMA [None]
  - PARAPARESIS [None]
  - THINKING ABNORMAL [None]
  - URINARY INCONTINENCE [None]
  - VISUAL ACUITY REDUCED [None]
